FAERS Safety Report 13774757 (Version 1)
Quarter: 2017Q3

REPORT INFORMATION
  Report Type: Spontaneous
  Country: US (occurrence: US)
  Receive Date: 20170720
  Receipt Date: 20170720
  Transmission Date: 20171127
  Serious: Yes (Hospitalization)
  Sender: FDA-Public Use
  Company Number: None

PATIENT
  Age: 80 Year
  Sex: Female

DRUGS (2)
  1. NEORAL [Suspect]
     Active Substance: CYCLOSPORINE
     Indication: DERMATITIS
     Route: 048
     Dates: start: 20170524, end: 20170718
  2. NEORAL [Suspect]
     Active Substance: CYCLOSPORINE
     Indication: DERMATITIS
     Route: 048
     Dates: start: 20170524, end: 20170718

REACTIONS (2)
  - Hypersensitivity [None]
  - Swollen tongue [None]

NARRATIVE: CASE EVENT DATE: 20170718
